FAERS Safety Report 8321959 (Version 2)
Quarter: 2012Q4

REPORT INFORMATION
  Report Type: Report from Study
  Country: FR (occurrence: FR)
  Receive Date: 20120105
  Receipt Date: 20121207
  Transmission Date: 20130627
  Serious: Yes (Life-Threatening, Hospitalization, Disabling)
  Sender: FDA-Public Use
  Company Number: FR-BIOGENIDEC-2011BI048742

PATIENT
  Age: 58 Year
  Sex: Female
  Weight: 107 kg

DRUGS (6)
  1. TYSABRI [Suspect]
     Indication: MULTIPLE SCLEROSIS
     Route: 042
     Dates: start: 20081210, end: 201007
  2. TYSABRI [Suspect]
     Indication: MULTIPLE SCLEROSIS
     Route: 042
     Dates: start: 20100915
  3. CORTICOSTEROIDS [Concomitant]
     Indication: HEMIPARESIS
  4. ACEBUTOLOL [Concomitant]
  5. GABAPENTIN [Concomitant]
     Indication: PAIN
  6. BACLOFEN [Concomitant]
     Indication: MUSCLE SPASTICITY

REACTIONS (2)
  - Cerebrovascular accident [Recovered/Resolved with Sequelae]
  - Carotid artery dissection [Recovered/Resolved with Sequelae]
